FAERS Safety Report 18396554 (Version 2)
Quarter: 2020Q4

REPORT INFORMATION
  Report Type: Report from Study
  Country: US (occurrence: US)
  Receive Date: 20201019
  Receipt Date: 20201102
  Transmission Date: 20210114
  Serious: Yes (Other)
  Sender: FDA-Public Use
  Company Number: US-GILEAD-2020-0497946

PATIENT
  Age: 82 Year
  Sex: Female
  Weight: 81.4 kg

DRUGS (10)
  1. FUROSEMIDE. [Concomitant]
     Active Substance: FUROSEMIDE
  2. ASPIRIN 81 [Concomitant]
     Active Substance: ASPIRIN
  3. LIDOCAINE. [Concomitant]
     Active Substance: LIDOCAINE
  4. INSULIN LISPRO [Concomitant]
     Active Substance: INSULIN LISPRO
  5. GABAPENTIN. [Concomitant]
     Active Substance: GABAPENTIN
  6. ALBUTEROL [SALBUTAMOL SULFATE] [Concomitant]
     Active Substance: ALBUTEROL SULFATE
  7. AMBRISENTAN [Suspect]
     Active Substance: AMBRISENTAN
     Indication: PRODUCT USED FOR UNKNOWN INDICATION
     Dosage: 5 MG
     Route: 048
     Dates: start: 20200902
  8. TRAMADOL. [Concomitant]
     Active Substance: TRAMADOL
  9. HYDRALAZINE [Concomitant]
     Active Substance: HYDRALAZINE HYDROCHLORIDE
  10. SILDENAFIL. [Concomitant]
     Active Substance: SILDENAFIL

REACTIONS (3)
  - Dialysis [Unknown]
  - Blood pressure increased [Not Recovered/Not Resolved]
  - Hypertension [Unknown]
